FAERS Safety Report 10151173 (Version 2)
Quarter: 2014Q2

REPORT INFORMATION
  Report Type: Spontaneous
  Country: US (occurrence: US)
  Receive Date: 20140502
  Receipt Date: 20140617
  Transmission Date: 20141212
  Serious: Yes (Hospitalization)
  Sender: FDA-Public Use
  Company Number: US-ASTRAZENECA-2014SE10949

PATIENT
  Age: 54 Year
  Sex: Male
  Weight: 78 kg

DRUGS (3)
  1. PRILOSEC OTC [Suspect]
     Indication: GASTRIC PH DECREASED
     Route: 048
     Dates: start: 20140206, end: 20140212
  2. INSULIN [Concomitant]
  3. MULTIVITAMIN [Concomitant]

REACTIONS (1)
  - Palpitations [Recovered/Resolved]
